FAERS Safety Report 9551247 (Version 1)
Quarter: 2013Q3

REPORT INFORMATION
  Report Type: Spontaneous
  Country: US (occurrence: US)
  Receive Date: 20130925
  Receipt Date: 20130925
  Transmission Date: 20140515
  Serious: No
  Sender: FDA-Public Use
  Company Number: US-009507513-1309USA011536

PATIENT
  Sex: Female

DRUGS (2)
  1. JANUMET [Suspect]
     Indication: TYPE 2 DIABETES MELLITUS
     Dosage: 50/1000MG, BID
     Route: 048
     Dates: start: 2010
  2. LANTUS [Concomitant]
     Dosage: UNK

REACTIONS (1)
  - Abdominal pain [Recovered/Resolved]
